FAERS Safety Report 9214351 (Version 2)
Quarter: 2013Q2

REPORT INFORMATION
  Report Type: Spontaneous
  Country: US (occurrence: US)
  Receive Date: 20130405
  Receipt Date: 20130409
  Transmission Date: 20140414
  Serious: Yes (Hospitalization)
  Sender: FDA-Public Use
  Company Number: US-JNJFOC-20130317497

PATIENT
  Age: 58 Year
  Sex: Female

DRUGS (14)
  1. XARELTO [Suspect]
     Indication: CEREBROVASCULAR ACCIDENT PROPHYLAXIS
     Route: 048
     Dates: end: 20130326
  2. XARELTO [Suspect]
     Indication: ATRIAL FIBRILLATION
     Route: 048
     Dates: end: 20130326
  3. NORVASC [Concomitant]
     Route: 065
  4. FISH OIL [Concomitant]
     Route: 065
  5. FLAX SEED OIL [Concomitant]
     Route: 065
  6. VITAMIN B COMPLEX [Concomitant]
     Route: 065
  7. VITAMIN D3 [Concomitant]
     Route: 065
  8. LASIX [Concomitant]
     Route: 065
  9. METOPROLOL [Concomitant]
     Route: 065
  10. DILTIAZEM [Concomitant]
     Route: 065
  11. POTASSIUM [Concomitant]
     Route: 065
  12. LOSARTAN [Concomitant]
     Route: 065
  13. TYLENOL [Concomitant]
     Route: 065
  14. DOCUSATE [Concomitant]
     Indication: ABNORMAL FAECES
     Route: 065

REACTIONS (3)
  - Chest pain [Unknown]
  - Occult blood positive [Not Recovered/Not Resolved]
  - International normalised ratio increased [Not Recovered/Not Resolved]
